FAERS Safety Report 15222938 (Version 2)
Quarter: 2018Q3

REPORT INFORMATION
  Report Type: Spontaneous
  Country: NL (occurrence: NL)
  Receive Date: 20180731
  Receipt Date: 20180830
  Transmission Date: 20181010
  Serious: Yes (Life-Threatening, Hospitalization)
  Sender: FDA-Public Use
  Company Number: NL-BAYER-2018-142058

PATIENT
  Age: 35 Year
  Sex: Female

DRUGS (6)
  1. MEROPENEM. [Suspect]
     Active Substance: MEROPENEM
  2. ACETAMINOPHEN. [Concomitant]
     Active Substance: ACETAMINOPHEN
  3. ACENOCOUMAROL [Concomitant]
     Active Substance: ACENOCOUMAROL
  4. TEICOPLANIN [Suspect]
     Active Substance: TEICOPLANIN
  5. CIPROFLOXACIN BETAIN [Suspect]
     Active Substance: CIPROFLOXACIN
     Route: 042
  6. MOXIFLOXACIN ORAL [Suspect]
     Active Substance: MOXIFLOXACIN

REACTIONS (3)
  - Gastrointestinal disorder [None]
  - Drug reaction with eosinophilia and systemic symptoms [Recovered/Resolved]
  - Acute respiratory distress syndrome [Recovered/Resolved]
